FAERS Safety Report 21459145 (Version 2)
Quarter: 2022Q4

REPORT INFORMATION
  Report Type: Other
  Country: US (occurrence: None)
  Receive Date: 20221014
  Receipt Date: 20221018
  Transmission Date: 20230113
  Serious: No
  Sender: FDA-Public Use
  Company Number: US-ROCHE-2939084

PATIENT
  Sex: Female

DRUGS (3)
  1. OCREVUS [Suspect]
     Active Substance: OCRELIZUMAB
     Indication: Multiple sclerosis
     Dosage: SUBSEQUENT DOSE : 600 MG EVERY 6 MONTHS?DOT : 05/APR/2021, 04/OCT/2021, 04/APR/2022
     Route: 042
  2. OCREVUS [Suspect]
     Active Substance: OCRELIZUMAB
     Route: 042
  3. TYSABRI [Concomitant]
     Active Substance: NATALIZUMAB

REACTIONS (3)
  - Ear pruritus [Unknown]
  - Throat irritation [Unknown]
  - COVID-19 [Unknown]
